FAERS Safety Report 20429895 (Version 1)
Quarter: 2022Q1

REPORT INFORMATION
  Report Type: Report from Study
  Country: FR (occurrence: FR)
  Receive Date: 20220204
  Receipt Date: 20220204
  Transmission Date: 20220423
  Serious: Yes (Life-Threatening, Hospitalization)
  Sender: FDA-Public Use
  Company Number: FR-SERVIER-S18010987

PATIENT

DRUGS (26)
  1. ONCASPAR [Suspect]
     Active Substance: PEGASPARGASE
     Indication: Acute lymphocytic leukaemia
     Dosage: 3525 IU (2500 IU/M2) QD, ON D15, D43
     Route: 042
     Dates: start: 20181008, end: 20181008
  2. ONCASPAR [Suspect]
     Active Substance: PEGASPARGASE
     Dosage: 3525 IU (2500 IU/M2) QD, ON D15, D43
     Route: 042
     Dates: start: 20181105
  3. VINCRISTINE [Suspect]
     Active Substance: VINCRISTINE
     Indication: Acute lymphocytic leukaemia
     Dosage: 2 MG, QD, ON D15-D22, D43-D50
     Route: 042
     Dates: start: 20181008, end: 20181103
  4. CYCLOPHOSPHAMIDE [Suspect]
     Active Substance: CYCLOPHOSPHAMIDE
     Indication: Acute lymphocytic leukaemia
     Dosage: 1400 MG, QD, ON D1-D29
     Route: 042
     Dates: start: 20180924, end: 20181021
  5. CYTARABINE [Suspect]
     Active Substance: CYTARABINE
     Indication: Acute lymphocytic leukaemia
     Dosage: 110 MG, QD, ON D3-D6, D10-D13, D31-D34 AND D38-D41
     Route: 042
     Dates: start: 20180926, end: 20181103
  6. CYTARABINE [Suspect]
     Active Substance: CYTARABINE
     Dosage: 30 MG, QD, D3, D13
     Route: 037
     Dates: start: 20180926, end: 20181024
  7. MERCAPTOPURINE [Suspect]
     Active Substance: MERCAPTOPURINE
     Indication: Acute lymphocytic leukaemia
     Dosage: 82 MG, QD, ON D1-D14, D29-D42
     Route: 048
     Dates: start: 20180924, end: 20181104
  8. HYDROCORTISONE [Suspect]
     Active Substance: HYDROCORTISONE
     Indication: Acute lymphocytic leukaemia
     Dosage: 15 MG, QD, D3, D13
     Route: 037
     Dates: start: 20180926, end: 20181024
  9. METHOTREXATE [Suspect]
     Active Substance: METHOTREXATE
     Indication: Acute lymphocytic leukaemia
     Dosage: 15 MG, QD, D3, D13
     Route: 037
     Dates: start: 20180926, end: 20181024
  10. TN UNSPECIFIED [Concomitant]
     Indication: Nausea
     Dosage: 15 MG, QD
     Route: 048
     Dates: start: 201808
  11. TN UNSPECIFIED [Concomitant]
     Indication: Vomiting
  12. TN UNSPECIFIED [Concomitant]
     Indication: Nausea
     Dosage: 15 MG, QD
     Route: 042
     Dates: start: 201808
  13. TN UNSPECIFIED [Concomitant]
     Indication: Vomiting
  14. TN UNSPECIFIED [Concomitant]
     Indication: Gastritis prophylaxis
     Dosage: 50 MG, QD
     Route: 048
     Dates: start: 201808
  15. TN UNSPECIFIED [Concomitant]
     Indication: Prophylaxis
     Dosage: UNK
     Route: 048
     Dates: start: 201808
  16. TN UNSPECIFIED [Concomitant]
     Indication: Contraception
     Dosage: 5 MG, QD
     Route: 048
  17. TN UNSPECIFIED [Concomitant]
     Indication: Pain
     Dosage: 2 G, QD
     Route: 048
     Dates: start: 201808
  18. TN UNSPECIFIED [Concomitant]
     Indication: Pyrexia
  19. TN UNSPECIFIED [Concomitant]
     Indication: Constipation
     Dosage: 20 MG, QD
     Route: 048
     Dates: start: 201808
  20. BACTRIM [Concomitant]
     Active Substance: SULFAMETHOXAZOLE\TRIMETHOPRIM
     Indication: Infection prophylaxis
     Dosage: UNK
     Route: 048
     Dates: start: 201808
  21. TN UNSPECIFIED [Concomitant]
     Indication: Pain
     Dosage: 50 MG, QD
     Route: 042
     Dates: start: 201808
  22. VITAMIN K [Concomitant]
     Active Substance: PHYTONADIONE
     Indication: Prophylaxis
     Dosage: 10 MG, QD
     Route: 042
     Dates: start: 201808
  23. TN UNSPECIFIED [Concomitant]
     Indication: Nausea
     Dosage: UNK
     Route: 042
     Dates: start: 201808
  24. TN UNSPECIFIED [Concomitant]
     Indication: Vomiting
  25. TN UNSPECIFIED [Concomitant]
     Indication: Pain
     Dosage: UNK
     Route: 048
     Dates: start: 201808
  26. AMITRIPTYLINE HYDROCHLORIDE [Concomitant]
     Active Substance: AMITRIPTYLINE HYDROCHLORIDE
     Indication: Depression
     Dosage: 8 MG, QD
     Route: 048
     Dates: start: 201808

REACTIONS (2)
  - Febrile neutropenia [Recovered/Resolved]
  - Escherichia bacteraemia [Recovered/Resolved]

NARRATIVE: CASE EVENT DATE: 20181116
